FAERS Safety Report 5650780-2 (Version None)
Quarter: 2008Q1

REPORT INFORMATION
  Report Type: 
  Country: None (occurrence: None)
  Receive Date: 20080305
  Receipt Date: 20080222
  Transmission Date: 20080703
  Serious: Yes (Hospitalization)
  Sender: FDA-Public Use
  Company Number: ZA-ROCHE-546352

PATIENT
  Sex: Female

DRUGS (5)
  1. CELLCEPT [Suspect]
     Route: 065
  2. CELLCEPT [Suspect]
     Route: 065
  3. RECORMON [Suspect]
     Route: 065
  4. RECORMON [Suspect]
     Dosage: 3 TO 4 YEARS THERAPY.
     Route: 065
  5. IMMUNOSUPPRESSANTS NOS [Concomitant]

REACTIONS (1)
  - APLASIA PURE RED CELL [None]
